FAERS Safety Report 24341835 (Version 3)
Quarter: 2024Q4

REPORT INFORMATION
  Report Type: Spontaneous
  Country: PL (occurrence: PL)
  Receive Date: 20240920
  Receipt Date: 20241010
  Transmission Date: 20250114
  Serious: Yes (Hospitalization)
  Sender: NOVO NORDISK
  Company Number: PL-EMA-DD-20240906-7482675-061111

PATIENT
  Age: 31 Year
  Sex: Female

DRUGS (39)
  1. SERTRALINE [Interacting]
     Active Substance: SERTRALINE HYDROCHLORIDE
     Indication: Insomnia
  2. SERTRALINE [Interacting]
     Active Substance: SERTRALINE HYDROCHLORIDE
     Indication: Depression
     Dosage: 100 MG, QD (IN THE MORNING)
  3. MIRTAZAPINE [Interacting]
     Active Substance: MIRTAZAPINE
     Indication: Depression
  4. MIRTAZAPINE [Interacting]
     Active Substance: MIRTAZAPINE
     Indication: Insomnia
     Dosage: 30 MG, QD (NIGHT)
  5. BUPROPION [Interacting]
     Active Substance: BUPROPION
     Indication: Depression
  6. BUPROPION [Interacting]
     Active Substance: BUPROPION
     Indication: Insomnia
     Dosage: UNK
  7. DICLOFENAC [Interacting]
     Active Substance: DICLOFENAC
     Indication: Dysphagia
     Dosage: UNK
  8. DICLOFENAC [Interacting]
     Active Substance: DICLOFENAC
     Indication: Oropharyngeal pain
  9. DICLOFENAC [Interacting]
     Active Substance: DICLOFENAC
     Indication: Throat irritation
  10. ACETAMINOPHEN [Interacting]
     Active Substance: ACETAMINOPHEN
     Indication: Oropharyngeal pain
     Dosage: 1 G, TID (3 ? 1 G)
     Route: 048
  11. ACETAMINOPHEN [Interacting]
     Active Substance: ACETAMINOPHEN
     Indication: Dysphagia
  12. ACETAMINOPHEN [Interacting]
     Active Substance: ACETAMINOPHEN
     Indication: Throat irritation
  13. AMLODIPINE [Interacting]
     Active Substance: AMLODIPINE BESYLATE
     Indication: Hypertension
     Dosage: 10 MG
  14. ZOLPIDEM [Interacting]
     Active Substance: ZOLPIDEM TARTRATE
     Indication: Insomnia
     Dosage: UNK
  15. ZOLPIDEM [Interacting]
     Active Substance: ZOLPIDEM TARTRATE
     Indication: Weight increased
  16. ZOLPIDEM [Interacting]
     Active Substance: ZOLPIDEM TARTRATE
     Indication: Depression
  17. ZOLPIDEM [Interacting]
     Active Substance: ZOLPIDEM TARTRATE
     Indication: Mental disorder
  18. SEMAGLUTIDE [Suspect]
     Active Substance: SEMAGLUTIDE
     Indication: Depression
     Dosage: UNK
  19. SEMAGLUTIDE [Suspect]
     Active Substance: SEMAGLUTIDE
     Indication: Insomnia
  20. SEMAGLUTIDE [Suspect]
     Active Substance: SEMAGLUTIDE
     Indication: Mental disorder
  21. SEMAGLUTIDE [Suspect]
     Active Substance: SEMAGLUTIDE
     Indication: Weight increased
  22. RAMIPRIL [Interacting]
     Active Substance: RAMIPRIL
     Indication: Hypertension
     Dosage: 10 MG, QD
  23. AMOXICILLIN\CLAVULANATE POTASSIUM [Interacting]
     Active Substance: AMOXICILLIN\CLAVULANATE POTASSIUM
     Indication: Dysphagia
     Dosage: UNK
  24. AMOXICILLIN\CLAVULANATE POTASSIUM [Interacting]
     Active Substance: AMOXICILLIN\CLAVULANATE POTASSIUM
     Indication: Oropharyngeal pain
  25. AMOXICILLIN\CLAVULANATE POTASSIUM [Interacting]
     Active Substance: AMOXICILLIN\CLAVULANATE POTASSIUM
     Indication: Throat irritation
  26. METAMIZOLE [Suspect]
     Active Substance: METAMIZOLE
     Indication: Product used for unknown indication
     Dosage: 2500MG
     Route: 042
  27. LIDOCAINE [Suspect]
     Active Substance: LIDOCAINE
     Indication: Dysphagia
  28. LIDOCAINE [Suspect]
     Active Substance: LIDOCAINE
     Indication: Throat irritation
  29. LIDOCAINE [Suspect]
     Active Substance: LIDOCAINE
     Indication: Oropharyngeal pain
     Dosage: UNK
  30. NALTREXONE [Interacting]
     Active Substance: NALTREXONE
     Indication: Insomnia
  31. NALTREXONE [Interacting]
     Active Substance: NALTREXONE
     Indication: Depression
     Dosage: UNK
  32. BUPROPION HYDROCHLORIDE\NALTREXONE HYDROCHLORIDE [Suspect]
     Active Substance: BUPROPION HYDROCHLORIDE\NALTREXONE HYDROCHLORIDE
     Indication: Weight increased
  33. BUPROPION HYDROCHLORIDE\NALTREXONE HYDROCHLORIDE [Suspect]
     Active Substance: BUPROPION HYDROCHLORIDE\NALTREXONE HYDROCHLORIDE
     Indication: Mental disorder
     Dosage: STRENGTH 8/90 MG, UNKNOWN DOSE AND FREQUENCY
  34. AMOXICILLIN [Interacting]
     Active Substance: AMOXICILLIN
     Indication: Throat irritation
  35. AMOXICILLIN [Interacting]
     Active Substance: AMOXICILLIN
     Indication: Dysphagia
  36. AMOXICILLIN [Interacting]
     Active Substance: AMOXICILLIN
     Indication: Oropharyngeal pain
     Dosage: 1 G, TID
     Route: 048
  37. BUPROPION HYDROCHLORIDE\NALTREXONE HYDROCHLORIDE [Interacting]
     Active Substance: BUPROPION HYDROCHLORIDE\NALTREXONE HYDROCHLORIDE
     Indication: Insomnia
  38. BUPROPION HYDROCHLORIDE\NALTREXONE HYDROCHLORIDE [Interacting]
     Active Substance: BUPROPION HYDROCHLORIDE\NALTREXONE HYDROCHLORIDE
     Indication: Depression
     Dosage: UNK
  39. WEGOVY [Suspect]
     Active Substance: SEMAGLUTIDE
     Indication: Weight increased

REACTIONS (8)
  - Oropharyngeal pain [Recovering/Resolving]
  - Dysphagia [Recovering/Resolving]
  - Throat irritation [Recovering/Resolving]
  - Pain [Recovering/Resolving]
  - Increased appetite [Unknown]
  - Weight increased [Unknown]
  - Emotional distress [Unknown]
  - Product use in unapproved indication [Unknown]
